FAERS Safety Report 7764498-3 (Version None)
Quarter: 2011Q3

REPORT INFORMATION
  Report Type: 
  Country: None (occurrence: None)
  Receive Date: 20110921
  Receipt Date: 20110913
  Transmission Date: 20111222
  Serious: Yes (Other)
  Sender: FDA-Public Use
  Company Number: GB-UCBSA-040852

PATIENT
  Sex: Male

DRUGS (1)
  1. CIMZIA [Suspect]
     Indication: RHEUMATOID ARTHRITIS
     Route: 058
     Dates: start: 20110701, end: 20110901

REACTIONS (8)
  - INSOMNIA [None]
  - SKIN TIGHTNESS [None]
  - RASH MACULO-PAPULAR [None]
  - RASH PRURITIC [None]
  - PHOTOSENSITIVITY REACTION [None]
  - RASH GENERALISED [None]
  - BLISTER [None]
  - JOINT SWELLING [None]
